FAERS Safety Report 20848110 (Version 1)
Quarter: 2022Q2

REPORT INFORMATION
  Report Type: Spontaneous
  Country: US (occurrence: None)
  Receive Date: 20220519
  Receipt Date: 20220519
  Transmission Date: 20220721
  Serious: Yes (Other)
  Sender: FDA-Public Use
  Company Number: US-MDD US Operations-MDD202204-000738

PATIENT
  Age: 92 Year
  Sex: Female
  Weight: 37.15 kg

DRUGS (9)
  1. APOKYN [Suspect]
     Active Substance: APOMORPHINE HYDROCHLORIDE
     Indication: Parkinson^s disease
     Route: 058
     Dates: start: 20220406, end: 20220507
  2. DOCUSOL [Concomitant]
     Active Substance: DOCUSATE SODIUM
     Indication: Faeces hard
     Dosage: NOT PROVIDED
  3. CARBIDOPA\LEVODOPA [Concomitant]
     Active Substance: CARBIDOPA\LEVODOPA
     Indication: Parkinson^s disease
     Dosage: 25/100MG
  4. GOCOVRI [Concomitant]
     Active Substance: AMANTADINE
     Indication: Parkinson^s disease
     Dosage: NOT PROVIDED
  5. GOCOVRI [Concomitant]
     Active Substance: AMANTADINE
     Indication: Dyskinesia
  6. ENTACAPONE [Concomitant]
     Active Substance: ENTACAPONE
     Indication: Parkinson^s disease
     Dosage: NOT PROVIDED
  7. GABAPENTIN [Concomitant]
     Active Substance: GABAPENTIN
     Indication: Neuralgia
     Dosage: NOT PROVIDED
  8. LEVOTHYROXINE [Concomitant]
     Active Substance: LEVOTHYROXINE
     Dosage: NOT PROVIDED
  9. CARBIDOPA [Concomitant]
     Active Substance: CARBIDOPA
     Indication: Parkinson^s disease
     Dosage: NOT PROVIDED

REACTIONS (6)
  - Transient ischaemic attack [Recovering/Resolving]
  - Parkinson^s disease [Unknown]
  - Somnolence [Recovered/Resolved]
  - Hallucination [Unknown]
  - Urinary tract infection [Unknown]
  - Constipation [Unknown]

NARRATIVE: CASE EVENT DATE: 20220101
